FAERS Safety Report 8117379-X (Version None)
Quarter: 2012Q1

REPORT INFORMATION
  Report Type: 
  Country: None (occurrence: None)
  Receive Date: 20120206
  Receipt Date: 20120127
  Transmission Date: 20120608
  Serious: Yes (Hospitalization)
  Sender: FDA-Public Use
  Company Number: DE-ASTRAZENECA-2012SE06501

PATIENT
  Sex: Male

DRUGS (3)
  1. SEVERAL NOT FURTHER SPECIFIED DRUGS [Concomitant]
  2. BRILIQUE [Suspect]
     Indication: ACUTE CORONARY SYNDROME
     Route: 048
     Dates: start: 20110901
  3. HALDOL [Concomitant]

REACTIONS (2)
  - PSYCHOTIC DISORDER [None]
  - AGGRESSION [None]
